FAERS Safety Report 19397945 (Version 1)
Quarter: 2021Q2

REPORT INFORMATION
  Report Type: Spontaneous
  Country: US (occurrence: US)
  Receive Date: 20210610
  Receipt Date: 20210610
  Transmission Date: 20210717
  Serious: Yes (Other)
  Sender: FDA-Public Use
  Company Number: US-TEVA-2021-US-1920101

PATIENT
  Age: 6 Month
  Sex: Female

DRUGS (3)
  1. IMMUNE?GLOBULIN [Concomitant]
     Indication: IMMUNOMODULATORY THERAPY
     Dosage: 500MG/KG MONTHLY ONCE
     Route: 042
  2. METHOTREXATE. [Suspect]
     Active Substance: METHOTREXATE
     Indication: GLYCOGEN STORAGE DISEASE TYPE II
     Dosage: 0.4MG/KG, THREE CYCLES OF LOW?DOSE METHOTREXATE; THREE DOSES PER CYCLE
     Route: 065
  3. RITUXIMAB. [Suspect]
     Active Substance: RITUXIMAB
     Indication: GLYCOGEN STORAGE DISEASE TYPE II
     Dosage: 375 MG/M2 WEEKLY ONCE, FOUR DOSES
     Route: 042

REACTIONS (4)
  - Pneumonia aspiration [Unknown]
  - Aspartate aminotransferase increased [Recovered/Resolved]
  - Enterovirus infection [Unknown]
  - Rhinovirus infection [Unknown]
